FAERS Safety Report 6908899-1 (Version None)
Quarter: 2010Q3

REPORT INFORMATION
  Report Type: 
  Country: None (occurrence: None)
  Receive Date: 20100803
  Receipt Date: 20100728
  Transmission Date: 20110219
  Serious: Yes (Life-Threatening, Hospitalization)
  Sender: FDA-Public Use
  Company Number: 20108050

PATIENT
  Sex: Male

DRUGS (1)
  1. LIORESAL [Suspect]
     Indication: MUSCLE SPASTICITY
     Dosage: 559.2 MCG DAILY INTRATHECAL
     Route: 037

REACTIONS (6)
  - HYPERHIDROSIS [None]
  - HYPERTONIA [None]
  - INSOMNIA [None]
  - MUSCLE TIGHTNESS [None]
  - POSTURING [None]
  - RHABDOMYOLYSIS [None]
